FAERS Safety Report 8766259 (Version 1)
Quarter: 2012Q4

REPORT INFORMATION
  Report Type: 
  Country: GB (occurrence: GB)
  Receive Date: 20120904
  Receipt Date: 20120904
  Transmission Date: 20130627
  Serious: Yes (Other)
  Sender: FDA-Public Use
  Company Number: GB-ASTRAZENECA-2012SE64588

PATIENT
  Age: 54 Year
  Sex: Female
  Weight: 49 kg

DRUGS (3)
  1. OMEPRAZOLE [Suspect]
     Indication: GASTROOESOPHAGEAL REFLUX DISEASE
     Route: 048
     Dates: start: 20120701, end: 20120731
  2. CIMETIDINE [Suspect]
  3. GAVISCON [Concomitant]

REACTIONS (5)
  - Anxiety [Recovered/Resolved]
  - Condition aggravated [Unknown]
  - Malaise [Recovered/Resolved]
  - Dyspepsia [Recovering/Resolving]
  - Nausea [Recovered/Resolved]
